FAERS Safety Report 7902135-5 (Version None)
Quarter: 2011Q4

REPORT INFORMATION
  Report Type: 
  Country: None (occurrence: None)
  Receive Date: 20111108
  Receipt Date: 20111027
  Transmission Date: 20120403
  Serious: Yes (Other)
  Sender: FDA-Public Use
  Company Number: US-BRISTOL-MYERS SQUIBB COMPANY-16216087

PATIENT
  Age: 35 Year
  Sex: Male

DRUGS (1)
  1. METFORMIN HCL [Suspect]
     Indication: TYPE 2 DIABETES MELLITUS

REACTIONS (5)
  - HEPATIC STEATOSIS [None]
  - CHOLESTASIS [None]
  - HEPATITIS ACUTE [None]
  - SKIN EXFOLIATION [None]
  - PANCREATITIS [None]
